FAERS Safety Report 7647954-8 (Version None)
Quarter: 2011Q3

REPORT INFORMATION
  Report Type: 
  Country: None (occurrence: None)
  Receive Date: 20110801
  Receipt Date: 20110722
  Transmission Date: 20111222
  Serious: Yes (Hospitalization)
  Sender: FDA-Public Use
  Company Number: US-GENZYME-CERZ-1002172

PATIENT
  Age: 34 Year
  Sex: Male
  Weight: 83.9 kg

DRUGS (1)
  1. CEREZYME [Suspect]
     Indication: GAUCHER'S DISEASE
     Dosage: 800 U, Q2W
     Route: 042
     Dates: start: 20070822

REACTIONS (1)
  - INFECTION [None]
